FAERS Safety Report 6757801-4 (Version None)
Quarter: 2010Q2

REPORT INFORMATION
  Report Type: 
  Country: None (occurrence: None)
  Receive Date: 20100607
  Receipt Date: 20100528
  Transmission Date: 20101027
  Serious: Yes (Death)
  Sender: FDA-Public Use
  Company Number: IE-MEDIMMUNE-MEDI-0011223

PATIENT
  Sex: Female

DRUGS (4)
  1. SYNAGIS [Suspect]
     Route: 030
     Dates: start: 20091007, end: 20091104
  2. GAVISCON [Concomitant]
  3. FERROUS SULFATE TAB [Concomitant]
  4. ABIDEL [Concomitant]

REACTIONS (1)
  - DEATH [None]
